FAERS Safety Report 10100524 (Version 3)
Quarter: 2014Q4

REPORT INFORMATION
  Report Type: Spontaneous
  Country: US (occurrence: US)
  Receive Date: 20140423
  Receipt Date: 20141023
  Transmission Date: 20150528
  Serious: No
  Sender: FDA-Public Use
  Company Number: US-GILEAD-2014-0100310

PATIENT
  Age: 44 Year
  Sex: Female

DRUGS (1)
  1. LETAIRIS [Suspect]
     Active Substance: AMBRISENTAN
     Indication: PULMONARY ARTERIAL HYPERTENSION
     Dosage: 5 MG, QD
     Route: 065
     Dates: start: 20130429

REACTIONS (5)
  - Dyspnoea [Unknown]
  - Syncope [Unknown]
  - Concussion [Unknown]
  - Head injury [Unknown]
  - Anaemia [Unknown]

NARRATIVE: CASE EVENT DATE: 201403
